FAERS Safety Report 4415678-6 (Version None)
Quarter: 2004Q2

REPORT INFORMATION
  Report Type: 
  Country: None (occurrence: None)
  Receive Date: 20040630
  Receipt Date: 20040325
  Transmission Date: 20050107
  Serious: Yes (Death, Other)
  Sender: FDA-Public Use
  Company Number: 2004008265

PATIENT
  Age: 37 Year
  Sex: Male

DRUGS (1)
  1. ZOLOFT [Suspect]
     Indication: INSOMNIA
     Dosage: ORAL
     Route: 048
     Dates: start: 20030901

REACTIONS (2)
  - AGGRESSION [None]
  - COMPLETED SUICIDE [None]
